FAERS Safety Report 8507035 (Version 3)
Quarter: 2013Q3

REPORT INFORMATION
  Report Type: Spontaneous
  Country: US (occurrence: US)
  Receive Date: 20120412
  Receipt Date: 20130705
  Transmission Date: 20140515
  Serious: No
  Sender: FDA-Public Use
  Company Number: US-ASTRAZENECA-2011SE47420

PATIENT
  Age: 67 Year
  Sex: Female
  Weight: 63.5 kg

DRUGS (8)
  1. NEXIUM [Suspect]
     Indication: GASTROOESOPHAGEAL REFLUX DISEASE
     Route: 048
     Dates: start: 2003, end: 2010
  2. LISINOPRIL [Suspect]
     Indication: HYPERTENSION
     Route: 065
  3. OMEPRAZOLE [Suspect]
     Route: 065
     Dates: start: 201306
  4. LOVASTATIN [Concomitant]
     Indication: BLOOD CHOLESTEROL ABNORMAL
  5. ASPIRIN [Concomitant]
     Indication: CARDIAC DISORDER
     Dates: start: 2003
  6. ASPIRIN [Concomitant]
     Indication: ANTICOAGULANT THERAPY
     Dates: start: 2003
  7. OVER THE COUNTER MEDICATIONS [Concomitant]
  8. DEXILANT [Concomitant]

REACTIONS (18)
  - Choking sensation [Unknown]
  - Regurgitation [Unknown]
  - Aphagia [Unknown]
  - Weight decreased [Unknown]
  - Throat irritation [Unknown]
  - Gastrooesophageal reflux disease [Unknown]
  - Feeling abnormal [Unknown]
  - Cough [Unknown]
  - Feeling abnormal [Unknown]
  - Dyspepsia [Unknown]
  - Dyspepsia [Unknown]
  - Eructation [Unknown]
  - Insomnia [Unknown]
  - Malaise [Unknown]
  - Vomiting [Unknown]
  - Drug dose omission [Unknown]
  - Intentional drug misuse [Unknown]
  - Drug ineffective [Unknown]
